FAERS Safety Report 10430303 (Version 1)
Quarter: 2014Q3

REPORT INFORMATION
  Report Type: Spontaneous
  Country: US (occurrence: None)
  Receive Date: 20140808
  Receipt Date: 20140808
  Transmission Date: 20150326
  Serious: No
  Sender: FDA-Public Use
  Company Number: US-016145

PATIENT
  Age: 55 Year
  Sex: Male
  Weight: 76.2 kg

DRUGS (4)
  1. PREPOPIK [Suspect]
     Active Substance: ANHYDROUS CITRIC ACID\MAGNESIUM OXIDE\SODIUM PICOSULFATE
     Indication: COLONOSCOPY
     Dosage: 4PM ON 22 JUN AND 8PM ON 22 JUN ORAL)
     Route: 048
     Dates: start: 20140622, end: 20140622
  2. TOPROL XL [Concomitant]
     Active Substance: METOPROLOL SUCCINATE
  3. DIGOXIN ( TO UNKOWN) [Concomitant]
  4. PREPOPIK [Suspect]
     Active Substance: ANHYDROUS CITRIC ACID\MAGNESIUM OXIDE\SODIUM PICOSULFATE
     Indication: BOWEL PREPARATION
     Dosage: 4PM ON 22 JUN AND 8PM ON 22 JUN ORAL)
     Route: 048
     Dates: start: 20140622, end: 20140622

REACTIONS (3)
  - Tongue disorder [None]
  - Tongue discolouration [None]
  - Oral discomfort [None]

NARRATIVE: CASE EVENT DATE: 20140623
